FAERS Safety Report 14661702 (Version 1)
Quarter: 2018Q1

REPORT INFORMATION
  Report Type: Spontaneous
  Country: PR (occurrence: PR)
  Receive Date: 20180320
  Receipt Date: 20180320
  Transmission Date: 20180509
  Serious: Yes (Hospitalization, Other)
  Sender: FDA-Public Use
  Company Number: PR-BAUSCH-BL-2018-006631

PATIENT
  Age: 77 Year
  Sex: Male

DRUGS (1)
  1. DEXAMETHASONE. [Suspect]
     Active Substance: DEXAMETHASONE
     Indication: MENINGIOMA
     Route: 065

REACTIONS (8)
  - Colitis [Unknown]
  - Sepsis [Unknown]
  - Urticaria [Unknown]
  - Hepatic enzyme increased [Unknown]
  - Strongyloidiasis [Unknown]
  - Respiratory failure [Unknown]
  - Shock [Unknown]
  - Hypoxia [Unknown]
